FAERS Safety Report 11395758 (Version 1)
Quarter: 2015Q3

REPORT INFORMATION
  Report Type: Spontaneous
  Country: US (occurrence: None)
  Receive Date: 20150818
  Receipt Date: 20150818
  Transmission Date: 20151125
  Serious: Yes (Other)
  Sender: FDA-Public Use
  Company Number: None

PATIENT
  Age: 49 Year
  Sex: Female
  Weight: 84.37 kg

DRUGS (8)
  1. ONE TOUCH GLUCOMSTEP [Concomitant]
  2. LOSARTAN POTASSIUM. [Concomitant]
     Active Substance: LOSARTAN POTASSIUM
  3. SIMVASTATIN. [Concomitant]
     Active Substance: SIMVASTATIN
  4. CLONAZEPAM. [Concomitant]
     Active Substance: CLONAZEPAM
  5. INVOKANA [Suspect]
     Active Substance: CANAGLIFLOZIN
     Indication: DIABETES MELLITUS
     Route: 048
     Dates: start: 20150414, end: 201507
  6. INSULIN GLARGINE [Concomitant]
     Active Substance: INSULIN GLARGINE
  7. ABILIFY [Concomitant]
     Active Substance: ARIPIPRAZOLE
  8. TRADSENTA [Concomitant]

REACTIONS (5)
  - Weight increased [None]
  - Dyspnoea [None]
  - Visual impairment [None]
  - Therapy cessation [None]
  - Musculoskeletal stiffness [None]

NARRATIVE: CASE EVENT DATE: 201506
